FAERS Safety Report 5274859-2 (Version None)
Quarter: 2007Q1

REPORT INFORMATION
  Report Type: 
  Country: None (occurrence: None)
  Receive Date: 20061208
  Receipt Date: 20060428
  Transmission Date: 20070707
  Serious: Yes (Hospitalization)
  Sender: FDA-Public Use
  Company Number: 2006UW07784

PATIENT
  Age: 71 Year
  Sex: Female

DRUGS (6)
  1. CRESTOR [Suspect]
  2. PRILOSEC [Concomitant]
  3. LEXAPRO [Concomitant]
  4. M.V.I. [Concomitant]
  5. CALCIUM [Concomitant]
  6. ASPIRIN [Concomitant]

REACTIONS (1)
  - PANCREATITIS [None]
